FAERS Safety Report 9822546 (Version 1)
Quarter: 2014Q1

REPORT INFORMATION
  Report Type: Report from Study
  Country: US (occurrence: US)
  Receive Date: 20140116
  Receipt Date: 20140116
  Transmission Date: 20141002
  Serious: Yes (Other)
  Sender: FDA-Public Use
  Company Number: US-ROCHE-1332929

PATIENT
  Sex: Female

DRUGS (9)
  1. LUCENTIS [Suspect]
     Indication: AGE-RELATED MACULAR DEGENERATION
     Dosage: RIGHT EYE
     Route: 050
  2. LUCENTIS [Suspect]
     Indication: RETINAL VEIN OCCLUSION
  3. AMLODIPINE [Concomitant]
     Indication: HYPERTENSION
     Route: 065
  4. CARVEDILOL [Concomitant]
     Indication: HYPERTENSION
     Route: 065
  5. LISINOPRIL [Concomitant]
     Indication: HYPERTENSION
     Route: 065
  6. ATIVAN [Concomitant]
     Indication: ANXIETY
     Dosage: AS NEEDED
     Route: 065
  7. ATIVAN [Concomitant]
     Dosage: AS NEEDED
     Route: 065
  8. CLARITIN [Concomitant]
  9. ASPIRIN [Concomitant]
     Dosage: LOW DOSE
     Route: 065

REACTIONS (5)
  - Eye infection [Recovered/Resolved]
  - Visual acuity reduced [Recovering/Resolving]
  - Local swelling [Unknown]
  - Skin discolouration [Not Recovered/Not Resolved]
  - Pain in extremity [Not Recovered/Not Resolved]
